FAERS Safety Report 21435425 (Version 2)
Quarter: 2023Q1

REPORT INFORMATION
  Report Type: Spontaneous
  Country: GB (occurrence: GB)
  Receive Date: 20221010
  Receipt Date: 20230123
  Transmission Date: 20230417
  Serious: Yes (Hospitalization)
  Sender: FDA-Public Use
  Company Number: GB-VERTEX PHARMACEUTICALS-2022-014969

PATIENT
  Sex: Male

DRUGS (3)
  1. ELEXACAFTOR\IVACAFTOR\TEZACAFTOR [Suspect]
     Active Substance: ELEXACAFTOR\IVACAFTOR\TEZACAFTOR
     Indication: Cystic fibrosis
     Dosage: TWO TABLETS (75MG IVACAFTOR/ 50MG TEZACAFTOR/ 100MG ELEXACAFTOR) AM
     Route: 048
  2. KALYDECO [Suspect]
     Active Substance: IVACAFTOR
     Indication: Cystic fibrosis
     Dosage: ONE TABLET PM
     Route: 048
  3. PULMOZYME [Concomitant]
     Active Substance: DORNASE ALFA
     Dosage: UNK
     Dates: end: 202210

REACTIONS (2)
  - Hospitalisation [Unknown]
  - Malaise [Unknown]

NARRATIVE: CASE EVENT DATE: 20220101
